FAERS Safety Report 11154576 (Version 1)
Quarter: 2015Q2

REPORT INFORMATION
  Report Type: Spontaneous
  Country: US (occurrence: None)
  Receive Date: 20150601
  Receipt Date: 20150601
  Transmission Date: 20150821
  Serious: Yes (Death)
  Sender: FDA-Public Use
  Company Number: None

PATIENT
  Age: 25 Year
  Sex: Female
  Weight: 59 kg

DRUGS (1)
  1. ALISERTIB [Suspect]
     Active Substance: ALISERTIB
     Indication: ATYPICAL TERATOID/RHABDOID TUMOUR OF CNS
     Route: 048
     Dates: start: 20141106, end: 20141113

REACTIONS (5)
  - Pain in extremity [None]
  - Malignant neoplasm progression [None]
  - Mental status changes [None]
  - Headache [None]
  - Atypical teratoid/rhabdoid tumour of CNS [None]

NARRATIVE: CASE EVENT DATE: 20141206
